FAERS Safety Report 9214814 (Version 3)
Quarter: 2013Q3

REPORT INFORMATION
  Report Type: Report from Study
  Country: US (occurrence: US)
  Receive Date: 20130405
  Receipt Date: 20130715
  Transmission Date: 20140515
  Serious: Yes (Other)
  Sender: FDA-Public Use
  Company Number: US-JNJFOC-20130401790

PATIENT
  Age: 70 Year
  Sex: Female
  Weight: 72.58 kg

DRUGS (12)
  1. XARELTO [Suspect]
     Indication: PROPHYLAXIS
     Route: 048
     Dates: start: 20130401
  2. XARELTO [Suspect]
     Indication: PROPHYLAXIS
     Route: 048
     Dates: start: 20130215, end: 20130328
  3. XARELTO [Suspect]
     Indication: ATRIAL FIBRILLATION
     Route: 048
     Dates: start: 20130401
  4. XARELTO [Suspect]
     Indication: ATRIAL FIBRILLATION
     Route: 048
     Dates: start: 20130215, end: 20130328
  5. MULTIVIT [Concomitant]
     Indication: NUTRITIONAL SUPPLEMENTATION
  6. OMEGA 3 [Concomitant]
     Indication: NUTRITIONAL SUPPLEMENTATION
  7. TOPROL XL [Concomitant]
     Indication: CARDIAC DISORDER
     Route: 048
  8. DIOVAN [Concomitant]
     Indication: HYPERTENSION
     Route: 048
  9. CRESTOR [Concomitant]
     Indication: BLOOD CHOLESTEROL INCREASED
     Route: 048
  10. COENZYME Q10 [Concomitant]
     Indication: NUTRITIONAL SUPPLEMENTATION
  11. VITAMIN D3 [Concomitant]
     Indication: NUTRITIONAL SUPPLEMENTATION
  12. ESTROTEST [Concomitant]

REACTIONS (7)
  - Haematochezia [Unknown]
  - Influenza [Not Recovered/Not Resolved]
  - Cough [Not Recovered/Not Resolved]
  - Respiratory tract congestion [Not Recovered/Not Resolved]
  - Mucosal haemorrhage [Unknown]
  - Abdominal pain upper [Unknown]
  - Faeces discoloured [Not Recovered/Not Resolved]
